FAERS Safety Report 5375996-4 (Version None)
Quarter: 2007Q2

REPORT INFORMATION
  Report Type: 
  Country: None (occurrence: None)
  Receive Date: 20070627
  Receipt Date: 20070627
  Transmission Date: 20071010
  Serious: Yes (Death)
  Sender: FDA-Public Use
  Company Number: None

PATIENT
  Age: 89 Year
  Sex: Male
  Weight: 47 kg

DRUGS (1)
  1. INSULIN [Suspect]

REACTIONS (1)
  - BLOOD GLUCOSE DECREASED [None]
